FAERS Safety Report 16910227 (Version 7)
Quarter: 2020Q4

REPORT INFORMATION
  Report Type: Spontaneous
  Country: JP (occurrence: JP)
  Receive Date: 20191011
  Receipt Date: 20201228
  Transmission Date: 20210113
  Serious: Yes (Death, Hospitalization, Disabling, Other)
  Sender: FDA-Public Use
  Company Number: JP-009507513-1910JPN001232J

PATIENT
  Age: 69 Year
  Sex: Male
  Weight: 101 kg

DRUGS (14)
  1. CARBOCISTEINE [Concomitant]
     Active Substance: CARBOCYSTEINE
     Dosage: 500 MILLIGRAM, TID
     Route: 048
     Dates: start: 20190921, end: 20191003
  2. KEYTRUDA [Suspect]
     Active Substance: PEMBROLIZUMAB
     Indication: LUNG ADENOCARCINOMA STAGE IV
     Dosage: 200 MILLIGRAM, Q3W
     Route: 041
     Dates: start: 20190917, end: 20190917
  3. TULOBUTEROL:TAPE EMEC [Concomitant]
     Indication: COUGH
     Dosage: UNK
     Dates: start: 20190902, end: 201909
  4. CALONAL [Concomitant]
     Active Substance: ACETAMINOPHEN
     Dosage: 400 MILLIGRAM, TID
     Route: 048
     Dates: start: 20190917, end: 20191003
  5. MAGMITT [Concomitant]
     Active Substance: MAGNESIUM OXIDE
     Indication: CONSTIPATION PROPHYLAXIS
     Dosage: UNK
     Route: 048
     Dates: start: 20190902, end: 201909
  6. HUSTAZOL [Concomitant]
     Dosage: 10 MILLIGRAM, TID
     Route: 048
     Dates: start: 20190921, end: 20191003
  7. MAGMITT [Concomitant]
     Active Substance: MAGNESIUM OXIDE
     Dosage: 660 MILLIGRAM, TID
     Route: 048
     Dates: start: 20190921, end: 20191003
  8. CARBOCISTEINE [Concomitant]
     Active Substance: CARBOCYSTEINE
     Indication: PRODUCTIVE COUGH
     Dosage: UNK
     Route: 048
     Dates: start: 20190902, end: 201909
  9. CODEINE PHOSPHATE HYDRATE [Concomitant]
     Active Substance: CODEINE PHOSPHATE
     Indication: COUGH
     Dosage: UNK
     Route: 065
     Dates: start: 20190902, end: 201909
  10. ZOLPIDEM TARTRATE OD [Concomitant]
     Active Substance: ZOLPIDEM TARTRATE
     Dosage: UNK
     Route: 048
     Dates: start: 20190902, end: 2019
  11. TULOBUTEROL:TAPE EMEC [Concomitant]
     Dosage: 2 MILLIGRAM, QD
     Dates: start: 20190921, end: 20200313
  12. CODEINE PHOSPHATE HYDRATE [Concomitant]
     Active Substance: CODEINE PHOSPHATE
     Dosage: 20 MILLIGRAM, TID
     Route: 048
     Dates: start: 20190921, end: 20191003
  13. CALONAL [Concomitant]
     Active Substance: ACETAMINOPHEN
     Indication: CANCER PAIN
     Dosage: 400 MILLIGRAM, TID
     Route: 048
     Dates: start: 201909, end: 201909
  14. HUSTAZOL [Concomitant]
     Indication: COUGH
     Dosage: UNK UNK,
     Route: 048
     Dates: start: 20190902, end: 201909

REACTIONS (3)
  - Subdural haematoma [Unknown]
  - Acute kidney injury [Not Recovered/Not Resolved]
  - Malignant neoplasm progression [Fatal]

NARRATIVE: CASE EVENT DATE: 20191003
